FAERS Safety Report 7029436-X (Version None)
Quarter: 2010Q3

REPORT INFORMATION
  Report Type: 
  Country: None (occurrence: None)
  Receive Date: 20100930
  Receipt Date: 20100920
  Transmission Date: 20110219
  Serious: Yes (Other)
  Sender: FDA-Public Use
  Company Number: 702529

PATIENT
  Sex: Male

DRUGS (4)
  1. VINCRISTINE SULFATE [Suspect]
     Indication: ASTROCYTOMA
  2. THIOGUANINE [Suspect]
     Indication: ASTROCYTOMA
  3. (PROCARBAZINE) [Suspect]
     Indication: ASTROCYTOMA
  4. (LOMUSTINE) [Suspect]
     Indication: ASTROCYTOMA

REACTIONS (2)
  - PRECOCIOUS PUBERTY [None]
  - PRIMARY HYPOGONADISM [None]
